FAERS Safety Report 8356707-7 (Version None)
Quarter: 2012Q2

REPORT INFORMATION
  Report Type: 
  Country: None (occurrence: None)
  Receive Date: 20120514
  Receipt Date: 20120502
  Transmission Date: 20120825
  Serious: Yes (Other)
  Sender: FDA-Public Use
  Company Number: NO-PFIZER INC-2011308529

PATIENT
  Age: 51 Year
  Sex: Female

DRUGS (11)
  1. TARGINIQ [Suspect]
     Indication: CONSTIPATION
  2. ACETAMINOPHEN [Concomitant]
     Dosage: 3 G, DAILY
  3. ZOPICLONE [Concomitant]
     Dosage: 10 MG, DAILY
  4. DIAZEPAM [Concomitant]
     Dosage: 30 MG, DAILY
  5. REMERON [Concomitant]
     Dosage: 45 MG, DAILY
  6. TRIMEPRAZINE TAB [Concomitant]
     Dosage: 30 MG, DAILY
  7. CARBAMAZEPINE [Concomitant]
     Dosage: 400 MG, DAILY
  8. SIMVASTATIN [Concomitant]
     Dosage: 40 MG, DAILY
  9. MORPHINE SULFATE [Suspect]
     Indication: PAIN
     Dosage: 10 MG, FOUR TIMES A DAY
     Route: 048
  10. TARGINIQ [Suspect]
     Indication: PAIN
     Dosage: 20/10 MG, THREE TIMES DAILY
     Route: 048
     Dates: start: 20110920, end: 20110923
  11. CODEINE [Concomitant]
     Dosage: 180 MG, DAILY

REACTIONS (7)
  - DRUG WITHDRAWAL SYNDROME [None]
  - BREAKTHROUGH PAIN [None]
  - DRUG EFFECT DECREASED [None]
  - HYPERHIDROSIS [None]
  - CHILLS [None]
  - DIARRHOEA [None]
  - INCORRECT DOSE ADMINISTERED [None]
